FAERS Safety Report 22001841 (Version 4)
Quarter: 2023Q1

REPORT INFORMATION
  Report Type: Report from Study
  Country: AU (occurrence: AU)
  Receive Date: 20230216
  Receipt Date: 20230315
  Transmission Date: 20230418
  Serious: Yes (Death, Hospitalization)
  Sender: FDA-Public Use
  Company Number: AU-BAYER-2023A017006

PATIENT
  Age: 76 Year
  Sex: Male
  Weight: 79.4 kg

DRUGS (10)
  1. REGORAFENIB [Suspect]
     Active Substance: REGORAFENIB
     Indication: Gastrooesophageal cancer
     Dosage: 90 MG
     Route: 048
     Dates: start: 20221222, end: 20230208
  2. NIVOLUMAB [Suspect]
     Active Substance: NIVOLUMAB
     Indication: Gastrooesophageal cancer
     Dosage: 240 MG
     Route: 042
     Dates: start: 20221222, end: 20230125
  3. ASPIRIN [Concomitant]
     Active Substance: ASPIRIN
     Dosage: 100 MG, QD
     Route: 048
     Dates: start: 20200101
  4. PANTOPRAZOLE [Concomitant]
     Active Substance: PANTOPRAZOLE
     Dosage: 40 MG, QD
     Route: 048
     Dates: start: 20200101
  5. PERINDOPRIL/AMLODIPINE HCS [Concomitant]
     Dosage: 1 DF, QD
     Route: 048
     Dates: start: 20200610
  6. POTASSIUM CHLORIDE [Concomitant]
     Active Substance: POTASSIUM CHLORIDE
     Dosage: 600 MG, QD
     Route: 048
     Dates: start: 20200101
  7. PREGABALIN [Concomitant]
     Active Substance: PREGABALIN
     Dosage: 75 MG, QD
     Route: 048
     Dates: start: 20190101
  8. ROSUVASTATIN [Concomitant]
     Active Substance: ROSUVASTATIN
     Dosage: 20 MG, QD
     Route: 048
     Dates: start: 20200101
  9. CEPHALEXIN [Concomitant]
     Active Substance: CEPHALEXIN
     Indication: Oedema peripheral
     Dosage: 500 MG, TID
     Route: 048
     Dates: start: 20221217, end: 20221221
  10. CEPHALEXIN [Concomitant]
     Active Substance: CEPHALEXIN
     Indication: Localised infection

REACTIONS (1)
  - Gastrooesophageal cancer [Fatal]

NARRATIVE: CASE EVENT DATE: 20230213
